FAERS Safety Report 8419214-9 (Version None)
Quarter: 2012Q2

REPORT INFORMATION
  Report Type: 
  Country: None (occurrence: None)
  Receive Date: 20120607
  Receipt Date: 20120531
  Transmission Date: 20120825
  Serious: Yes (Death)
  Sender: FDA-Public Use
  Company Number: AU-ASTRAZENECA-2012SE30201

PATIENT
  Sex: Female

DRUGS (3)
  1. SEROQUEL [Suspect]
     Route: 048
  2. TOLTERODINE TARTRATE [Suspect]
     Route: 065
     Dates: start: 20081110
  3. METHADONE HCL [Suspect]
     Route: 065

REACTIONS (1)
  - OVERDOSE [None]
